FAERS Safety Report 8273871-9 (Version None)
Quarter: 2012Q2

REPORT INFORMATION
  Report Type: 
  Country: None (occurrence: None)
  Receive Date: 20120411
  Receipt Date: 20120406
  Transmission Date: 20120825
  Serious: Yes (Death, Hospitalization)
  Sender: FDA-Public Use
  Company Number: US-INCYTE CORPORATION-2012IN000536

PATIENT
  Sex: Male

DRUGS (5)
  1. ATIVAN [Concomitant]
     Dosage: 0.5 MG, QD
     Route: 048
  2. LASIX [Concomitant]
     Dosage: 40 MG, ALTERNATING WITH 80 MG, QD
  3. COUMADIN [Concomitant]
     Dosage: 5 MG, UNK
  4. PRILOSEC [Concomitant]
     Dosage: 20 MG, QD
     Route: 048
  5. JAKAFI [Suspect]
     Indication: POLYCYTHAEMIA VERA
     Dosage: 20 MG, BID
     Route: 048
     Dates: start: 20120301

REACTIONS (2)
  - PLEURAL EFFUSION [None]
  - DEATH [None]
